FAERS Safety Report 13899358 (Version 2)
Quarter: 2017Q3

REPORT INFORMATION
  Report Type: Spontaneous
  Country: US (occurrence: US)
  Receive Date: 20170824
  Receipt Date: 20170915
  Transmission Date: 20171127
  Serious: Yes (Other)
  Sender: FDA-Public Use
  Company Number: US-LUPIN (EUROPE) LIMITED-2017-04679

PATIENT
  Age: 64 Year
  Sex: Female
  Weight: 93.88 kg

DRUGS (1)
  1. LISINOPRIL TABLETS USP, 2.5MG [Suspect]
     Active Substance: LISINOPRIL
     Indication: NEPHROPROTECTIVE THERAPY
     Dosage: 2.5 MG, QD
     Route: 048
     Dates: start: 20170504

REACTIONS (2)
  - Suicidal ideation [Not Recovered/Not Resolved]
  - Product use in unapproved indication [Unknown]

NARRATIVE: CASE EVENT DATE: 20170504
